FAERS Safety Report 20378918 (Version 1)
Quarter: 2022Q1

REPORT INFORMATION
  Report Type: Spontaneous
  Country: US (occurrence: None)
  Receive Date: 20220126
  Receipt Date: 20220126
  Transmission Date: 20220423
  Serious: Yes (Death)
  Sender: FDA-Public Use
  Company Number: None

PATIENT
  Age: 67 Year
  Sex: Male
  Weight: 74.1 kg

DRUGS (26)
  1. AXITINIB [Suspect]
     Active Substance: AXITINIB
     Dates: end: 20211230
  2. PEMBROLIZUMAB [Suspect]
     Active Substance: PEMBROLIZUMAB
     Dates: end: 20211230
  3. ACETAMINOPHEN [Concomitant]
     Active Substance: ACETAMINOPHEN
  4. ALPRAZOLAM [Concomitant]
     Active Substance: ALPRAZOLAM
  5. ASPIRIN [Concomitant]
     Active Substance: ASPIRIN
  6. ATORVASTATIN [Concomitant]
     Active Substance: ATORVASTATIN
  7. BENZONATATE [Concomitant]
     Active Substance: BENZONATATE
  8. DAPAGLIFLOZIN [Concomitant]
     Active Substance: DAPAGLIFLOZIN
  9. DOCUSATE SODIUM [Concomitant]
     Active Substance: DOCUSATE SODIUM
  10. GUAIFENESIN [Concomitant]
     Active Substance: GUAIFENESIN
  11. INSULIN LISPRO [Concomitant]
     Active Substance: INSULIN LISPRO
  12. LEVOTHYROXINE [Concomitant]
     Active Substance: LEVOTHYROXINE
  13. LISINOPRIL [Concomitant]
     Active Substance: LISINOPRIL
  14. METFORMIN [Concomitant]
     Active Substance: METFORMIN HYDROCHLORIDE
  15. METOPROLOL SUCCINATE [Concomitant]
     Active Substance: METOPROLOL SUCCINATE
  16. NITROGLYCERIN [Concomitant]
     Active Substance: NITROGLYCERIN
  17. ONDANSETRON [Concomitant]
     Active Substance: ONDANSETRON
  18. OXYCODONE [Concomitant]
     Active Substance: OXYCODONE
  19. PAROXETINE [Concomitant]
     Active Substance: PAROXETINE
  20. Phenol Sore Throat [Concomitant]
  21. PIOGLITAZONE [Concomitant]
     Active Substance: PIOGLITAZONE
  22. POLYETHYLENE GLYCOL [Concomitant]
     Active Substance: POLYETHYLENE GLYCOL
  23. SILODOSIN [Concomitant]
     Active Substance: SILODOSIN
  24. TAMSULOSIN [Concomitant]
     Active Substance: TAMSULOSIN
  25. TRAMADOL [Concomitant]
     Active Substance: TRAMADOL
  26. VICTOZA [Concomitant]
     Active Substance: LIRAGLUTIDE

REACTIONS (4)
  - Disease progression [None]
  - Metastases to bone [None]
  - Metastases to lung [None]
  - Asthenia [None]

NARRATIVE: CASE EVENT DATE: 20220108
